FAERS Safety Report 12446250 (Version 4)
Quarter: 2020Q3

REPORT INFORMATION
  Report Type: Report from Study
  Country: TR (occurrence: TR)
  Receive Date: 20160608
  Receipt Date: 20160811
  Transmission Date: 20201104
  Serious: Yes (Death)
  Sender: FDA-Public Use
  Company Number: TR-ROCHE-1770073

PATIENT
  Age: 56 Year
  Sex: Male
  Weight: 71.5 kg

DRUGS (23)
  1. AVIL [Concomitant]
     Active Substance: PHENIRAMINE
     Route: 065
     Dates: start: 20160525, end: 20160525
  2. DEKORT [Concomitant]
     Active Substance: DEXAMETHASONE
     Route: 065
     Dates: start: 20160525, end: 20160525
  3. EMETRIL [Concomitant]
     Indication: PROPHYLAXIS
     Route: 065
     Dates: start: 20160524, end: 20160524
  4. DEKORT [Concomitant]
     Active Substance: DEXAMETHASONE
     Indication: PROPHYLAXIS
     Route: 065
     Dates: start: 20160524, end: 20160524
  5. DEKORT [Concomitant]
     Active Substance: DEXAMETHASONE
     Route: 065
     Dates: start: 20160526, end: 20160526
  6. RANITAB [Concomitant]
     Route: 065
     Dates: start: 20160525, end: 20160525
  7. TAMOL (TURKEY) [Concomitant]
     Route: 065
     Dates: start: 20160525, end: 20160525
  8. DORMICUM (MIDAZOLAM HYDROCHLORIDE) [Concomitant]
     Active Substance: MIDAZOLAM HYDROCHLORIDE
  9. AVIL [Concomitant]
     Active Substance: PHENIRAMINE
     Indication: PROPHYLAXIS
     Route: 065
     Dates: start: 20160524, end: 20160524
  10. TAMOL (TURKEY) [Concomitant]
     Route: 065
     Dates: start: 20160526, end: 20160526
  11. RITUXIMAB. [Suspect]
     Active Substance: RITUXIMAB
     Indication: DIFFUSE LARGE B-CELL LYMPHOMA
     Dosage: THE MOST RECENT DOSE PRIOR TO THE PULMONARY EDEMA WAS ADMINISTERED ON 24/MAY/2016 (686.2MG)
     Route: 042
     Dates: start: 20160524
  12. EMETRIL [Concomitant]
     Route: 065
     Dates: start: 20160526, end: 20160526
  13. BENDAMUSTINE [Suspect]
     Active Substance: BENDAMUSTINE
     Indication: DIFFUSE LARGE B-CELL LYMPHOMA
     Dosage: THE MOST RECENT DOSE PRIOR TO THE PULMONARY EDEMA WAS ADMINISTERED ON 26/MAY/2016 (164.7MG)
     Route: 042
     Dates: start: 20160525
  14. RANITAB [Concomitant]
     Indication: PROPHYLAXIS
     Route: 065
     Dates: start: 20160524, end: 20160524
  15. METFORMIN HYDROCHLORIDE. [Concomitant]
     Active Substance: METFORMIN HYDROCHLORIDE
     Indication: DIABETES MELLITUS
     Route: 065
     Dates: start: 2012
  16. POLATUZUMAB VEDOTIN. [Suspect]
     Active Substance: POLATUZUMAB VEDOTIN
     Indication: DIFFUSE LARGE B-CELL LYMPHOMA
     Dosage: THE MOST RECENT DOSE PRIOR TO THE PULMONARY EDEMA WAS ADMINISTERED ON 25/MAY/2016 (128.7MG)
     Route: 042
     Dates: start: 20160525
  17. EMETRIL [Concomitant]
     Route: 065
     Dates: start: 20160525, end: 20160525
  18. TAMOL (TURKEY) [Concomitant]
     Indication: PROPHYLAXIS
     Route: 065
     Dates: start: 20160524, end: 20160524
  19. FOLIC ACID. [Concomitant]
     Active Substance: FOLIC ACID
     Indication: PROPHYLAXIS
     Route: 065
     Dates: start: 201603
  20. AVIL [Concomitant]
     Active Substance: PHENIRAMINE
     Route: 065
     Dates: start: 20160526, end: 20160526
  21. ALLOPURINOL. [Concomitant]
     Active Substance: ALLOPURINOL
     Indication: PROPHYLAXIS
     Route: 065
     Dates: start: 20160523, end: 20160526
  22. ZIZOLID [Concomitant]
     Route: 065
     Dates: start: 20160610, end: 20160621
  23. RANITAB [Concomitant]
     Route: 065
     Dates: start: 20160526, end: 20160526

REACTIONS (1)
  - Pulmonary oedema [Fatal]

NARRATIVE: CASE EVENT DATE: 20160603
